FAERS Safety Report 22598700 (Version 1)
Quarter: 2023Q2

REPORT INFORMATION
  Report Type: Spontaneous
  Country: TW (occurrence: TW)
  Receive Date: 20230614
  Receipt Date: 20230614
  Transmission Date: 20230722
  Serious: Yes (Hospitalization, Other)
  Sender: FDA-Public Use
  Company Number: TW-STRIDES ARCOLAB LIMITED-2023SP009261

PATIENT
  Sex: Female

DRUGS (4)
  1. ZOLPIDEM [Suspect]
     Active Substance: ZOLPIDEM TARTRATE
     Indication: Insomnia
     Dosage: 20 MILLIGRAM/DAY
     Route: 065
  2. ZOLPIDEM [Suspect]
     Active Substance: ZOLPIDEM TARTRATE
     Dosage: 500 MILLIGRAM/DAY IN DIVIDED DOSES
     Route: 065
  3. CLOTHIAPINE [Concomitant]
     Active Substance: CLOTHIAPINE
     Indication: Insomnia
     Dosage: UNK,40-60 MG/DAY (ABUSED LOW-POTENCY ANTIPSYCHOTICS )
     Route: 065
  4. CHLORPROMAZINE [Concomitant]
     Active Substance: CHLORPROMAZINE
     Indication: Insomnia
     Dosage: UNK, 50-100 MG/DAY (ABUSED LOW-POTENCY ANTIPSYCHOTICS)
     Route: 065

REACTIONS (8)
  - Tardive dyskinesia [Unknown]
  - Condition aggravated [Unknown]
  - Therapeutic response unexpected [Unknown]
  - Anxiety [Unknown]
  - Tremor [Unknown]
  - Intentional product misuse [Unknown]
  - Drug dependence [Unknown]
  - Drug withdrawal syndrome [Unknown]
